FAERS Safety Report 6648971-7 (Version None)
Quarter: 2010Q1

REPORT INFORMATION
  Report Type: 
  Country: None (occurrence: None)
  Receive Date: 20100324
  Receipt Date: 20100315
  Transmission Date: 20100710
  Serious: Yes (Disabling)
  Sender: FDA-Public Use
  Company Number: US-MERCK-0603USA02481

PATIENT
  Age: 73 Year
  Sex: Female

DRUGS (7)
  1. VYTORIN [Suspect]
     Indication: BLOOD CHOLESTEROL INCREASED
     Route: 048
     Dates: start: 20050101, end: 20050101
  2. VYTORIN [Suspect]
     Route: 048
     Dates: end: 20050501
  3. DITROPAN [Concomitant]
     Route: 065
  4. ESTRACE [Concomitant]
     Route: 065
  5. NORVASC [Concomitant]
     Route: 065
  6. NEXIUM [Concomitant]
     Route: 065
  7. ASPIRIN [Concomitant]
     Route: 065

REACTIONS (5)
  - AMNESIA [None]
  - BALANCE DISORDER [None]
  - MOVEMENT DISORDER [None]
  - MUSCULAR WEAKNESS [None]
  - MUSCULOSKELETAL DISORDER [None]
